FAERS Safety Report 4591401-X (Version None)
Quarter: 2005Q1

REPORT INFORMATION
  Report Type: 
  Country: None (occurrence: None)
  Receive Date: 20050223
  Receipt Date: 20050223
  Transmission Date: 20050727
  Serious: No
  Sender: FDA-Public Use
  Company Number: None

PATIENT
  Age: 12 Year
  Sex: Male
  Weight: 22.2263 kg

DRUGS (1)
  1. CLONAZEPAM [Suspect]
     Indication: CEREBRAL PALSY
     Dosage: ONE HS
     Dates: start: 20040901

REACTIONS (2)
  - DRUG INEFFECTIVE [None]
  - PHARMACEUTICAL PRODUCT COMPLAINT [None]
